FAERS Safety Report 10154610 (Version 1)
Quarter: 2014Q2

REPORT INFORMATION
  Report Type: Spontaneous
  Country: FI (occurrence: FI)
  Receive Date: 20140506
  Receipt Date: 20140506
  Transmission Date: 20141212
  Serious: Yes (Other)
  Sender: FDA-Public Use
  Company Number: FI-BAYER-2014-065047

PATIENT
  Sex: Female

DRUGS (1)
  1. MIRENA [Suspect]
     Indication: MENOPAUSAL SYMPTOMS
     Dosage: 20 MCG/24HR, CONT
     Route: 015

REACTIONS (2)
  - Deafness unilateral [None]
  - Off label use [None]
